FAERS Safety Report 23115067 (Version 1)
Quarter: 2023Q4

REPORT INFORMATION
  Report Type: Spontaneous
  Country: US (occurrence: None)
  Receive Date: 20231026
  Receipt Date: 20231026
  Transmission Date: 20240109
  Serious: No
  Sender: FDA-Public Use
  Company Number: None

PATIENT
  Age: 65 Year
  Sex: Female
  Weight: 65.8 kg

DRUGS (1)
  1. ZOLEDRONIC ACID [Suspect]
     Active Substance: ZOLEDRONIC ACID
     Indication: Osteopenia
     Route: 042
     Dates: start: 20231016, end: 20231016

REACTIONS (10)
  - Cognitive disorder [None]
  - Infusion related reaction [None]
  - Dizziness [None]
  - Balance disorder [None]
  - Asthenia [None]
  - Incontinence [None]
  - Nausea [None]
  - Dysarthria [None]
  - Arthralgia [None]
  - Myalgia [None]

NARRATIVE: CASE EVENT DATE: 20231016
